FAERS Safety Report 11165210 (Version 1)
Quarter: 2015Q2

REPORT INFORMATION
  Report Type: Spontaneous
  Country: US (occurrence: None)
  Receive Date: 20150603
  Receipt Date: 20150603
  Transmission Date: 20150821
  Serious: No
  Sender: FDA-Public Use
  Company Number: None

PATIENT
  Age: 62 Year
  Sex: Female

DRUGS (13)
  1. TOPAMAX [Suspect]
     Active Substance: TOPIRAMATE
     Indication: MIGRAINE
     Dosage: TWO PILLS OF 100 MG
     Route: 048
  2. DEPLIN [Concomitant]
     Active Substance: LEVOMEFOLATE CALCIUM
  3. PEPCID [Concomitant]
     Active Substance: FAMOTIDINE
  4. VITAMIN B COMPLEX [Concomitant]
     Active Substance: CYANOCOBALAMIN\DEXPANTHENOL\NIACINAMIDE\PYRIDOXINE HYDROCHLORIDE\RIBOFLAVIN 5^-PHOSPHATE SODIUM\THIAMINE HYDROCHLORIDE\VITAMIN B COMPLEX
  5. ZINC [Concomitant]
     Active Substance: ZINC\ZINC CHLORIDE
  6. VITAMINS [Concomitant]
     Active Substance: VITAMINS
  7. D [Concomitant]
  8. PREMARIN [Concomitant]
     Active Substance: ESTROGENS, CONJUGATED
  9. SOLDN [Concomitant]
  10. C [Concomitant]
  11. E [Concomitant]
  12. EFFEXSOR [Concomitant]
  13. CA [Concomitant]

REACTIONS (1)
  - Diarrhoea [None]

NARRATIVE: CASE EVENT DATE: 20150311
